FAERS Safety Report 9257183 (Version 1)
Quarter: 2013Q2

REPORT INFORMATION
  Report Type: Spontaneous
  Country: US (occurrence: None)
  Receive Date: 20130424
  Receipt Date: 20130424
  Transmission Date: 20140414
  Serious: Yes (Hospitalization)
  Sender: FDA-Public Use
  Company Number: None

PATIENT
  Age: 60 Year
  Sex: Male
  Weight: 85.2 kg

DRUGS (2)
  1. BOCEPREVIR [Suspect]
     Indication: HEPATITIS C
     Route: 048
     Dates: start: 20120330
  2. RIBAVIRIN [Suspect]
     Route: 048
     Dates: start: 20120302

REACTIONS (3)
  - Nausea [None]
  - Vomiting [None]
  - Electrolyte imbalance [None]
